FAERS Safety Report 9714072 (Version 3)
Quarter: 2014Q1

REPORT INFORMATION
  Report Type: Spontaneous
  Country: CO (occurrence: CO)
  Receive Date: 20131126
  Receipt Date: 20140103
  Transmission Date: 20141002
  Serious: Yes (Other)
  Sender: FDA-Public Use
  Company Number: CO-PFIZER INC-2013207511

PATIENT
  Age: 55 Year
  Sex: Female

DRUGS (1)
  1. SUTENT [Suspect]
     Indication: RENAL CANCER METASTATIC
     Dosage: 50 MG, 1X/DAY
     Route: 048
     Dates: start: 201108, end: 201310

REACTIONS (30)
  - Deafness unilateral [Recovering/Resolving]
  - Haematemesis [Recovered/Resolved]
  - Renal failure [Recovering/Resolving]
  - Hypertension [Recovering/Resolving]
  - Tooth loss [Recovering/Resolving]
  - Gingival bleeding [Recovering/Resolving]
  - Anaemia [Recovering/Resolving]
  - Hypoaesthesia [Recovering/Resolving]
  - Acne [Recovering/Resolving]
  - Lip injury [Recovering/Resolving]
  - Asthenia [Recovering/Resolving]
  - Gait disturbance [Recovering/Resolving]
  - Lacrimal disorder [Recovering/Resolving]
  - Dry eye [Recovering/Resolving]
  - Eye irritation [Recovering/Resolving]
  - Insomnia [Recovering/Resolving]
  - Scab [Recovering/Resolving]
  - Palmar-plantar erythrodysaesthesia syndrome [Recovering/Resolving]
  - Oral pain [Recovered/Resolved]
  - Dysgeusia [Recovered/Resolved]
  - Amnesia [Recovering/Resolving]
  - Fatigue [Recovering/Resolving]
  - Fall [Recovering/Resolving]
  - Speech disorder [Recovering/Resolving]
  - Blood triglycerides increased [Recovering/Resolving]
  - Blood cholesterol increased [Recovering/Resolving]
  - Blood creatinine increased [Recovering/Resolving]
  - Dry skin [Recovering/Resolving]
  - Influenza [Recovering/Resolving]
  - Incorrect dose administered [Unknown]
